FAERS Safety Report 9964549 (Version 1)
Quarter: 2014Q1

REPORT INFORMATION
  Report Type: Spontaneous
  Country: US (occurrence: US)
  Receive Date: 20140305
  Receipt Date: 20140305
  Transmission Date: 20141002
  Serious: No
  Sender: FDA-Public Use
  Company Number: US-AMGEN-USASP2013084793

PATIENT
  Age: 52 Year
  Sex: Female
  Weight: 75.74 kg

DRUGS (1)
  1. ENBREL [Suspect]
     Indication: ARTHROPATHY
     Dosage: 50 MG/ML, QWK
     Route: 058

REACTIONS (1)
  - Arthralgia [Unknown]
